FAERS Safety Report 5215730-1 (Version None)
Quarter: 2007Q1

REPORT INFORMATION
  Report Type: 
  Country: None (occurrence: None)
  Receive Date: 20070123
  Receipt Date: 20070110
  Transmission Date: 20070707
  Serious: Yes (Hospitalization)
  Sender: FDA-Public Use
  Company Number: US-ELI_LILLY_AND_COMPANY-US200612004151

PATIENT
  Age: 62 Year
  Sex: Female

DRUGS (16)
  1. FORTEO [Suspect]
     Indication: OSTEOPOROSIS
     Dosage: 20 U, DAILY (1/D)
     Dates: start: 20060815
  2. DITROPAN XL [Concomitant]
  3. K-DUR 10 [Concomitant]
  4. SYNTHROID [Concomitant]
  5. DAYPRO                                  /USA/ [Concomitant]
  6. LASIX [Concomitant]
  7. NEXIUM [Concomitant]
  8. TYLENOL W/ CODEINE NO. 3 [Concomitant]
  9. LONOX [Concomitant]
  10. PERCOCET [Concomitant]
  11. VITAMIN E [Concomitant]
  12. ASCORBIC ACID [Concomitant]
  13. MAGNESIUM [Concomitant]
  14. VITAMIN B COMPLEX CAP [Concomitant]
  15. CALCIUM [Concomitant]
  16. VITAMIN D [Concomitant]
     Dosage: 1000 U, UNK

REACTIONS (13)
  - ABDOMINAL PAIN [None]
  - BREAST DISCOMFORT [None]
  - DYSPNOEA [None]
  - ERYTHEMA [None]
  - FEAR [None]
  - HEADACHE [None]
  - INJECTION SITE IRRITATION [None]
  - INJECTION SITE PAIN [None]
  - OEDEMA PERIPHERAL [None]
  - PAIN [None]
  - PHARMACEUTICAL PRODUCT COMPLAINT [None]
  - THROAT TIGHTNESS [None]
  - VACCINATION COMPLICATION [None]
